FAERS Safety Report 10226723 (Version 1)
Quarter: 2014Q2

REPORT INFORMATION
  Report Type: Report from Study
  Country: US (occurrence: US)
  Receive Date: 20140610
  Receipt Date: 20140610
  Transmission Date: 20141212
  Serious: Yes (Other)
  Sender: FDA-Public Use
  Company Number: US-ROCHE-1412291

PATIENT
  Age: 2 Year
  Sex: Male
  Weight: 39.17 kg

DRUGS (5)
  1. NUTROPIN AQ [Suspect]
     Indication: GROWTH HORMONE DEFICIENCY
     Route: 058
  2. NUTROPIN AQ [Suspect]
     Route: 058
  3. NUTROPIN AQ [Suspect]
     Route: 058
  4. SYNTHROID [Concomitant]
  5. MIRALAX [Concomitant]

REACTIONS (5)
  - Growth retardation [Unknown]
  - Limb asymmetry [Unknown]
  - Viral infection [Unknown]
  - Pyrexia [Unknown]
  - Nystagmus [Unknown]
